FAERS Safety Report 8462362-8 (Version None)
Quarter: 2012Q2

REPORT INFORMATION
  Report Type: 
  Country: None (occurrence: None)
  Receive Date: 20120619
  Receipt Date: 20120619
  Transmission Date: 20120825
  Serious: Yes (Other)
  Sender: FDA-Public Use
  Company Number: None

PATIENT
  Sex: Male

DRUGS (1)
  1. CYCLOSPORINE [Suspect]
     Dosage: 100MG Q12H ORAL
     Route: 048

REACTIONS (8)
  - ORAL DISCOMFORT [None]
  - DIZZINESS [None]
  - LOSS OF CONSCIOUSNESS [None]
  - URINARY INCONTINENCE [None]
  - NAUSEA [None]
  - CONVULSION [None]
  - POOR QUALITY DRUG ADMINISTERED [None]
  - HYPERHIDROSIS [None]
